FAERS Safety Report 7773245-0 (Version None)
Quarter: 2011Q3

REPORT INFORMATION
  Report Type: 
  Country: None (occurrence: None)
  Receive Date: 20110922
  Receipt Date: 20110916
  Transmission Date: 20111222
  Serious: Yes (Other)
  Sender: FDA-Public Use
  Company Number: US-SANOFI-AVENTIS-2011SA061224

PATIENT
  Age: 0 Day
  Sex: Female

DRUGS (2)
  1. PLAVIX [Suspect]
     Route: 064
  2. LOVENOX [Suspect]
     Route: 064

REACTIONS (2)
  - MATERNAL EXPOSURE DURING PREGNANCY [None]
  - CONGENITAL FOOT MALFORMATION [None]
